FAERS Safety Report 8228279-9 (Version None)
Quarter: 2012Q1

REPORT INFORMATION
  Report Type: 
  Country: None (occurrence: None)
  Receive Date: 20120322
  Receipt Date: 20111021
  Transmission Date: 20120608
  Serious: No
  Sender: FDA-Public Use
  Company Number: US-BRISTOL-MYERS SQUIBB COMPANY-16167116

PATIENT
  Age: 58 Year
  Sex: Male
  Weight: 141 kg

DRUGS (1)
  1. ERBITUX [Suspect]
     Indication: OROPHARYNGEAL CANCER STAGE UNSPECIFIED
     Dosage: STRENGTH:200 MG/100ML,30MIN/100ML
     Route: 042
     Dates: start: 20111015

REACTIONS (1)
  - MEDICATION ERROR [None]
